FAERS Safety Report 21206441 (Version 3)
Quarter: 2022Q3

REPORT INFORMATION
  Report Type: Spontaneous
  Country: US (occurrence: US)
  Receive Date: 20220812
  Receipt Date: 20220929
  Transmission Date: 20221027
  Serious: No
  Sender: FDA-Public Use
  Company Number: US-LEO Pharma-344613

PATIENT
  Age: 68 Year
  Sex: Male

DRUGS (2)
  1. ADBRY [Suspect]
     Active Substance: TRALOKINUMAB-LDRM
     Indication: Product used for unknown indication
     Dosage: DOSAGE : DOSAGE FOR THE INITIAL DOSE WAS NOT REPORTED THEN AT 300 MG WITH FREQUENCY NOT REPORTED
     Route: 058
     Dates: start: 2022
  2. ADBRY [Suspect]
     Active Substance: TRALOKINUMAB-LDRM
     Indication: Product used for unknown indication
     Dosage: DOSAGE : DOSAGE FOR THE INITIAL DOSE WAS NOT REPORTED THEN AT 300 MG WITH FREQUENCY NOT REPORTED
     Route: 058
     Dates: start: 2022

REACTIONS (3)
  - Syringe issue [Unknown]
  - Injection site pain [Unknown]
  - Drug ineffective [Unknown]

NARRATIVE: CASE EVENT DATE: 20220803
